FAERS Safety Report 6420274-5 (Version None)
Quarter: 2009Q4

REPORT INFORMATION
  Report Type: 
  Country: None (occurrence: None)
  Receive Date: 20091029
  Receipt Date: 20091019
  Transmission Date: 20100525
  Serious: Yes (Other)
  Sender: FDA-Public Use
  Company Number: US-B.I. PHARMACEUTICALS,INC./RIDGEFIELD-2009-DE-06577GD

PATIENT
  Age: 61 Year
  Sex: Male

DRUGS (2)
  1. PRAMIPEXOLE [Suspect]
     Indication: RESTLESS LEGS SYNDROME
     Dosage: 0.125 MG
  2. PRAMIPEXOLE [Suspect]
     Dosage: 1 MG

REACTIONS (3)
  - DRUG ABUSE [None]
  - LIBIDO INCREASED [None]
  - PATHOLOGICAL GAMBLING [None]
